FAERS Safety Report 13539200 (Version 1)
Quarter: 2017Q2

REPORT INFORMATION
  Report Type: Spontaneous
  Country: US (occurrence: US)
  Receive Date: 20170511
  Receipt Date: 20170511
  Transmission Date: 20170830
  Serious: No
  Sender: FDA-Public Use
  Company Number: None

PATIENT
  Sex: Female

DRUGS (1)
  1. CAPECITABINE 500MG ACCORD [Suspect]
     Active Substance: CAPECITABINE
     Indication: METASTASES TO BONE
     Dosage: 2000MG TWICE DAILY FOR 14 DAYS ON AND 7 DAYS OFF ORALLY
     Route: 048
     Dates: start: 20170427

REACTIONS (1)
  - Restless legs syndrome [None]
